FAERS Safety Report 9598028 (Version 1)
Quarter: 2013Q4

REPORT INFORMATION
  Report Type: Spontaneous
  Country: US (occurrence: US)
  Receive Date: 20131004
  Receipt Date: 20131004
  Transmission Date: 20140711
  Serious: No
  Sender: FDA-Public Use
  Company Number: US-AMGEN-USASP2013022207

PATIENT
  Age: 34 Year
  Sex: Female

DRUGS (8)
  1. ENBREL [Suspect]
     Indication: PSORIASIS
     Dosage: 50 MG, QWK FOR FIRST THREE MONTHS AND THEN EVERY OTHER WEEK
     Route: 058
     Dates: end: 201206
  2. ADRENALIN                          /00003901/ [Concomitant]
     Dosage: UNK
  3. IBUPROFEN [Concomitant]
     Dosage: UNK
  4. NIACIN [Concomitant]
     Dosage: UNK
  5. TYLENOL                            /00020001/ [Concomitant]
     Dosage: UNK
  6. VITAMIN B 12 [Concomitant]
     Dosage: UNK
  7. VITAMIN D3 [Concomitant]
     Dosage: UNK
  8. HERBAL PREPARATION [Concomitant]
     Dosage: UNK

REACTIONS (1)
  - Drug ineffective [Unknown]
